FAERS Safety Report 20479564 (Version 1)
Quarter: 2022Q1

REPORT INFORMATION
  Report Type: Spontaneous
  Country: US (occurrence: US)
  Receive Date: 20220216
  Receipt Date: 20220216
  Transmission Date: 20220423
  Serious: No
  Sender: FDA-Public Use
  Company Number: US-drreddys-SPO/USA/22/0146852

PATIENT
  Age: 76 Year
  Sex: Male
  Weight: 75.15 kg

DRUGS (1)
  1. LANSOPRAZOLE [Suspect]
     Active Substance: LANSOPRAZOLE
     Indication: Gastrooesophageal reflux disease
     Dates: start: 20220110

REACTIONS (4)
  - Underdose [Unknown]
  - Incorrect route of product administration [Unknown]
  - Product solubility abnormal [Unknown]
  - Drug ineffective [Unknown]
